FAERS Safety Report 11102022 (Version 4)
Quarter: 2015Q4

REPORT INFORMATION
  Report Type: Spontaneous
  Country: IT (occurrence: IT)
  Receive Date: 20150511
  Receipt Date: 20151110
  Transmission Date: 20160304
  Serious: Yes (Hospitalization)
  Sender: FDA-Public Use
  Company Number: IT-ROCHE-1574899

PATIENT
  Age: 71 Year
  Sex: Male

DRUGS (6)
  1. SOVALDI [Suspect]
     Active Substance: SOFOSBUVIR
     Indication: HEPATIC CIRRHOSIS
     Dosage: 400 MG - BOTTLE (HDPE) - 28 TABLETS
     Route: 048
     Dates: start: 20150306, end: 20150429
  2. PANTOPRAZOLE SODIUM. [Concomitant]
     Active Substance: PANTOPRAZOLE SODIUM
     Route: 048
  3. COPEGUS [Suspect]
     Active Substance: RIBAVIRIN
     Route: 048
  4. COPEGUS [Suspect]
     Active Substance: RIBAVIRIN
     Indication: HEPATIC CIRRHOSIS
     Dosage: 168 X 200 MG FILM-COATED TABLETS IN BOTTLE
     Route: 048
     Dates: start: 20150306, end: 20150429
  5. METFORMIN [Concomitant]
     Active Substance: METFORMIN HYDROCHLORIDE
     Route: 048
  6. PROPRANOLOL HYDROCHLORIDE. [Concomitant]
     Active Substance: PROPRANOLOL HYDROCHLORIDE
     Route: 048

REACTIONS (5)
  - Hyperbilirubinaemia [Recovered/Resolved]
  - International normalised ratio increased [Recovered/Resolved]
  - Ascites [Recovering/Resolving]
  - Peritonitis bacterial [Recovered/Resolved]
  - Anaemia [Recovering/Resolving]

NARRATIVE: CASE EVENT DATE: 20150420
